FAERS Safety Report 18992475 (Version 1)
Quarter: 2021Q1

REPORT INFORMATION
  Report Type: Spontaneous
  Country: GB (occurrence: GB)
  Receive Date: 20210310
  Receipt Date: 20210310
  Transmission Date: 20210420
  Serious: Yes (Other)
  Sender: FDA-Public Use
  Company Number: GB-ORGANON-O2103GBR001125

PATIENT
  Age: 66 Year
  Sex: Male

DRUGS (21)
  1. ADCAL D3 [Suspect]
     Active Substance: CALCIUM CARBONATE\CHOLECALCIFEROL
     Dosage: UNK
  2. RIVAROXABAN [Suspect]
     Active Substance: RIVAROXABAN
     Dosage: 20 MG TABLETS
  3. CITALOPRAM [Suspect]
     Active Substance: CITALOPRAM HYDROBROMIDE
     Dosage: 20 MG TABLETS
  4. FUROSEMIDE. [Suspect]
     Active Substance: FUROSEMIDE
     Dosage: 20 MG TABLETS
  5. TRAMADOL. [Suspect]
     Active Substance: TRAMADOL
     Dosage: 50 MG CAPSULE
     Dates: start: 20210223
  6. ALLOPURINOL. [Suspect]
     Active Substance: ALLOPURINOL
     Dosage: 300 MG TABLETS
  7. PARACETAMOL [Suspect]
     Active Substance: ACETAMINOPHEN
     Dosage: 500 MG TABLETS
     Dates: start: 20210223
  8. TAMSULOSIN [Suspect]
     Active Substance: TAMSULOSIN
     Dosage: 400 MICROGRAM MODIFIED?RELEASE CAPSULES
  9. OMEPRAZOLE. [Suspect]
     Active Substance: OMEPRAZOLE
     Dosage: 20 MG GASTRO?RESISTANT CAPSULES
  10. RAMIPRIL. [Suspect]
     Active Substance: RAMIPRIL
     Dosage: 1.25 MG TABLETS
     Dates: start: 20210223
  11. ZOLPIDEM [Suspect]
     Active Substance: ZOLPIDEM TARTRATE
     Dosage: 10 MG TABLETS
  12. SIMVASTATIN. [Suspect]
     Active Substance: SIMVASTATIN
     Dosage: 20 MG TABLETS
  13. AMITRIPTYLINE [Suspect]
     Active Substance: AMITRIPTYLINE
     Dosage: 10 MG TABLETS
  14. ALENDRONATE SODIUM. [Suspect]
     Active Substance: ALENDRONATE SODIUM
     Dosage: 70 MG TABLETS
  15. BISOPROLOL [Suspect]
     Active Substance: BISOPROLOL
     Dosage: 2.5 MG TABLETS
  16. FOLIC ACID. [Suspect]
     Active Substance: FOLIC ACID
     Dosage: 5 MG TABLETS
  17. PREGABALIN. [Suspect]
     Active Substance: PREGABALIN
     Dosage: 150 MG CAPSULE
  18. AMLODIPINE [Suspect]
     Active Substance: AMLODIPINE BESYLATE
     Dosage: 10 MG TABLETS
  19. HYPROMELLOSE [Suspect]
     Active Substance: HYPROMELLOSES
     Dosage: 0.3 % EYE DROPS
     Dates: start: 20210223
  20. PIROXICAM. [Suspect]
     Active Substance: PIROXICAM
     Dosage: 0.5 % GEL
  21. SILDENAFIL. [Suspect]
     Active Substance: SILDENAFIL
     Dosage: 50 MG TABLETS

REACTIONS (1)
  - Pancytopenia [Unknown]
